FAERS Safety Report 6975671-6 (Version None)
Quarter: 2010Q3

REPORT INFORMATION
  Report Type: 
  Country: None (occurrence: None)
  Receive Date: 20100908
  Receipt Date: 20100830
  Transmission Date: 20110219
  Serious: Yes (Disabling)
  Sender: FDA-Public Use
  Company Number: OSCN-NO-0712L-0504

PATIENT
  Age: 65 Year
  Sex: Male

DRUGS (9)
  1. OMNISCAN [Suspect]
     Indication: DIZZINESS
     Dosage: 50 ML, SINGLE DOSE, I.V., 16 ML, SINGLE DOSE, I.V.
     Route: 042
     Dates: start: 20021021, end: 20021021
  2. OMNISCAN [Suspect]
     Indication: HEADACHE
     Dosage: 50 ML, SINGLE DOSE, I.V., 16 ML, SINGLE DOSE, I.V.
     Route: 042
     Dates: start: 20021021, end: 20021021
  3. OMNISCAN [Suspect]
     Indication: NAUSEA
     Dosage: 50 ML, SINGLE DOSE, I.V., 16 ML, SINGLE DOSE, I.V.
     Route: 042
     Dates: start: 20021021, end: 20021021
  4. OMNISCAN [Suspect]
     Indication: RENAL TRANSPLANT
     Dosage: 50 ML, SINGLE DOSE, I.V., 16 ML, SINGLE DOSE, I.V.
     Route: 042
     Dates: start: 20021021, end: 20021021
  5. OMNISCAN [Suspect]
     Indication: DIZZINESS
     Dosage: 50 ML, SINGLE DOSE, I.V., 16 ML, SINGLE DOSE, I.V.
     Route: 042
     Dates: start: 20050517, end: 20050517
  6. OMNISCAN [Suspect]
     Indication: HEADACHE
     Dosage: 50 ML, SINGLE DOSE, I.V., 16 ML, SINGLE DOSE, I.V.
     Route: 042
     Dates: start: 20050517, end: 20050517
  7. OMNISCAN [Suspect]
     Indication: NAUSEA
     Dosage: 50 ML, SINGLE DOSE, I.V., 16 ML, SINGLE DOSE, I.V.
     Route: 042
     Dates: start: 20050517, end: 20050517
  8. OMNISCAN [Suspect]
     Indication: RENAL TRANSPLANT
     Dosage: 50 ML, SINGLE DOSE, I.V., 16 ML, SINGLE DOSE, I.V.
     Route: 042
     Dates: start: 20050517, end: 20050517
  9. MULTIHANCE [Suspect]
     Indication: RENAL ATROPHY
     Dosage: 15 ML, SINGLE DOSE
     Dates: start: 20010525, end: 20010525

REACTIONS (4)
  - DIZZINESS [None]
  - HEADACHE [None]
  - NAUSEA [None]
  - NEPHROGENIC SYSTEMIC FIBROSIS [None]
